FAERS Safety Report 7235384-2 (Version None)
Quarter: 2011Q1

REPORT INFORMATION
  Report Type: 
  Country: None (occurrence: None)
  Receive Date: 20110111
  Receipt Date: 20101227
  Transmission Date: 20110831
  Serious: Yes (Other)
  Sender: FDA-Public Use
  Company Number: US-DEXPHARM-20101506

PATIENT
  Age: 35 Year
  Sex: Female
  Weight: 63.49 kg

DRUGS (1)
  1. OMEPRAZOLE [Suspect]
     Indication: GASTRIC DISORDER
     Dosage: 20 MG, ORAL
     Route: 048
     Dates: end: 20080301

REACTIONS (4)
  - HEPATIC ENZYME INCREASED [None]
  - BILIARY CIRRHOSIS PRIMARY [None]
  - CHOLANGITIS [None]
  - PRODUCT SUBSTITUTION ISSUE [None]
